FAERS Safety Report 6356519-X (Version None)
Quarter: 2009Q3

REPORT INFORMATION
  Report Type: 
  Country: None (occurrence: None)
  Receive Date: 20090915
  Receipt Date: 20090909
  Transmission Date: 20100115
  Serious: Yes (Other)
  Sender: FDA-Public Use
  Company Number: B0593122A

PATIENT
  Sex: Male

DRUGS (1)
  1. LAMBIPOL [Suspect]
     Indication: DRUG USE FOR UNKNOWN INDICATION
     Dosage: 100MG PER DAY
     Route: 065
     Dates: start: 20090701

REACTIONS (3)
  - HYPERHIDROSIS [None]
  - PSORIASIS [None]
  - SKIN ODOUR ABNORMAL [None]
